FAERS Safety Report 16661299 (Version 1)
Quarter: 2019Q3

REPORT INFORMATION
  Report Type: Spontaneous
  Country: US (occurrence: US)
  Receive Date: 20190617
  Receipt Date: 20190617
  Transmission Date: 20191004
  Serious: Yes (Hospitalization)
  Sender: FDA-Public Use
  Company Number: None

PATIENT
  Age: 74 Year
  Sex: Female
  Weight: 43.3 kg

DRUGS (2)
  1. APIXABAN 2.5 OR 5MG [Suspect]
     Active Substance: APIXABAN
     Indication: DEEP VEIN THROMBOSIS
     Dosage: ?          OTHER DOSE:2.5 OR 5MG;?
     Route: 048
     Dates: start: 20190218
  2. NO DRUG NAME [Concomitant]

REACTIONS (1)
  - Parainfluenzae virus infection [None]

NARRATIVE: CASE EVENT DATE: 20190608
